FAERS Safety Report 5745438-5 (Version None)
Quarter: 2008Q2

REPORT INFORMATION
  Report Type: 
  Country: None (occurrence: None)
  Receive Date: 20080521
  Receipt Date: 20080509
  Transmission Date: 20081010
  Serious: Yes (Hospitalization)
  Sender: FDA-Public Use
  Company Number: JP-SANOFI-SYNTHELABO-A01200805301

PATIENT
  Age: 19 Year
  Sex: Female

DRUGS (3)
  1. BUSCOPAN [Concomitant]
     Indication: ABDOMINAL PAIN
     Dosage: UNK
     Route: 065
  2. PENTAZOCINE LACTATE [Suspect]
     Indication: DRUG USE FOR UNKNOWN INDICATION
     Route: 030
     Dates: start: 20080506, end: 20080507
  3. PENTAZOCINE LACTATE [Suspect]
     Route: 030
     Dates: start: 20080507, end: 20080507

REACTIONS (2)
  - HYPOAESTHESIA [None]
  - VITH NERVE PARALYSIS [None]
